FAERS Safety Report 17667191 (Version 2)
Quarter: 2020Q2

REPORT INFORMATION
  Report Type: Report from Study
  Country: None (occurrence: AU)
  Receive Date: 20200414
  Receipt Date: 20200428
  Transmission Date: 20200713
  Serious: Yes (Life-Threatening, Hospitalization, Other)
  Sender: FDA-Public Use
  Company Number: AU-ABBVIE-20P-008-3288541-00

PATIENT
  Age: 15 Year
  Sex: Male
  Weight: 81.6 kg

DRUGS (18)
  1. PLACEBO [Suspect]
     Active Substance: UNSPECIFIED INGREDIENT
     Indication: DERMATITIS ATOPIC
     Route: 048
     Dates: start: 20190624, end: 20191021
  2. INTUNIV [Concomitant]
     Active Substance: GUANFACINE HYDROCHLORIDE
     Indication: AUTISM SPECTRUM DISORDER
     Route: 048
     Dates: start: 20190702
  3. FEXOFENADINE [Concomitant]
     Active Substance: FEXOFENADINE HYDROCHLORIDE
     Indication: PRURITUS
  4. UPADACITINIB [Suspect]
     Active Substance: UPADACITINIB
     Indication: DERMATITIS ATOPIC
     Route: 048
     Dates: start: 20191022, end: 20200221
  5. LORATADINE. [Concomitant]
     Active Substance: LORATADINE
     Indication: PRURITUS
     Route: 048
     Dates: start: 20190819
  6. EMULSIFYING [Concomitant]
     Indication: DRY SKIN PROPHYLAXIS
     Route: 061
     Dates: start: 2010
  7. COAL TAR. [Concomitant]
     Active Substance: COAL TAR
     Indication: DERMATITIS ATOPIC
     Route: 061
     Dates: start: 20190715
  8. MUPIROCIN. [Concomitant]
     Active Substance: MUPIROCIN
     Indication: ECZEMA INFECTED
     Route: 061
     Dates: start: 20190819
  9. SERTRALINE [Concomitant]
     Active Substance: SERTRALINE HYDROCHLORIDE
     Indication: AUTISM SPECTRUM DISORDER
     Route: 048
     Dates: start: 2018
  10. QV [Concomitant]
     Indication: DRY SKIN PROPHYLAXIS
     Route: 061
     Dates: start: 2010
  11. FEXOFENADINE [Concomitant]
     Active Substance: FEXOFENADINE HYDROCHLORIDE
     Indication: PRURITUS
     Route: 048
     Dates: start: 2014, end: 202002
  12. RANITIDINE. [Concomitant]
     Active Substance: RANITIDINE
     Indication: PRURITUS
  13. CELESTONE OINTMENT [Concomitant]
     Indication: DERMATITIS ATOPIC
     Route: 061
     Dates: start: 20190723
  14. CELESTONE OINTMENT [Concomitant]
     Route: 061
     Dates: start: 20190523
  15. RANITIDINE. [Concomitant]
     Active Substance: RANITIDINE
     Indication: PRURITUS
     Route: 048
     Dates: start: 201903, end: 202002
  16. ELEUPHRAT [Concomitant]
     Active Substance: BETAMETHASONE DIPROPIONATE
     Indication: DERMATITIS ATOPIC
     Route: 061
     Dates: start: 20190723
  17. ELEUPHRAT [Concomitant]
     Active Substance: BETAMETHASONE DIPROPIONATE
     Route: 061
     Dates: start: 2014, end: 20190523
  18. CATAPRES [Concomitant]
     Active Substance: CLONIDINE HYDROCHLORIDE
     Indication: AUTISM SPECTRUM DISORDER
     Route: 048
     Dates: start: 201903

REACTIONS (4)
  - Osteomyelitis [Not Recovered/Not Resolved]
  - Blood culture positive [Not Recovered/Not Resolved]
  - Staphylococcal sepsis [Not Recovered/Not Resolved]
  - Culture urine positive [Not Recovered/Not Resolved]

NARRATIVE: CASE EVENT DATE: 20200220
